FAERS Safety Report 8224568-2 (Version None)
Quarter: 2012Q1

REPORT INFORMATION
  Report Type: 
  Country: None (occurrence: None)
  Receive Date: 20120320
  Receipt Date: 20120320
  Transmission Date: 20120608
  Serious: No
  Sender: FDA-Public Use
  Company Number: None

PATIENT
  Sex: Male
  Weight: 111.36 kg

DRUGS (1)
  1. ERBITUX [Suspect]
     Dosage: 16 MG

REACTIONS (11)
  - DIZZINESS [None]
  - SENSATION OF FOREIGN BODY [None]
  - HYPOTENSION [None]
  - PARAESTHESIA [None]
  - FEELING JITTERY [None]
  - THROAT TIGHTNESS [None]
  - ABDOMINAL PAIN UPPER [None]
  - CHEST PAIN [None]
  - ERYTHEMA [None]
  - INFUSION RELATED REACTION [None]
  - CHEST DISCOMFORT [None]
